FAERS Safety Report 6538787-4 (Version None)
Quarter: 2010Q1

REPORT INFORMATION
  Report Type: 
  Country: None (occurrence: None)
  Receive Date: 20100114
  Receipt Date: 20100114
  Transmission Date: 20100710
  Serious: Yes (Other)
  Sender: FDA-Public Use
  Company Number: None

PATIENT
  Age: 36 Year
  Sex: Female
  Weight: 60.782 kg

DRUGS (1)
  1. AVELOX [Suspect]
     Indication: SINUSITIS
     Dosage: DAILY FOR 10 DAYS PO
     Route: 048
     Dates: start: 20100107, end: 20100112

REACTIONS (8)
  - ANXIETY [None]
  - ARTHRALGIA [None]
  - FEAR [None]
  - HEART RATE DECREASED [None]
  - HEART RATE INCREASED [None]
  - HYPOAESTHESIA [None]
  - PAIN IN JAW [None]
  - THROAT TIGHTNESS [None]
